FAERS Safety Report 18740227 (Version 1)
Quarter: 2021Q1

REPORT INFORMATION
  Report Type: Spontaneous
  Country: PL (occurrence: PL)
  Receive Date: 20210114
  Receipt Date: 20210114
  Transmission Date: 20210419
  Serious: Yes (Other)
  Sender: FDA-Public Use
  Company Number: PL-PFIZER INC-2021012159

PATIENT
  Age: 63 Year
  Sex: Female

DRUGS (9)
  1. DOCETAXEL. [Suspect]
     Active Substance: DOCETAXEL
     Dosage: REDUCED DOSE AFTER 2 CYCLES
     Route: 065
     Dates: end: 2020
  2. CLEMASTINE [Concomitant]
     Active Substance: CLEMASTINE
     Dosage: UNK
  3. HYDROCORTISONE. [Concomitant]
     Active Substance: HYDROCORTISONE
     Dosage: PREMEDICATION
  4. DOCETAXEL. [Suspect]
     Active Substance: DOCETAXEL
     Indication: HER2 POSITIVE BREAST CANCER
     Dosage: UNK
     Route: 065
     Dates: start: 20200403, end: 2020
  5. HERCEPTIN [Suspect]
     Active Substance: TRASTUZUMAB
     Dosage: UNK
     Route: 065
     Dates: start: 20200403, end: 2020
  6. PERJETA [Suspect]
     Active Substance: PERTUZUMAB
     Indication: HER2 POSITIVE BREAST CANCER
     Dosage: UNK
     Route: 065
     Dates: start: 20200403
  7. CARBOPLATIN. [Suspect]
     Active Substance: CARBOPLATIN
     Indication: HER2 POSITIVE BREAST CANCER
     Dosage: REDUCED DOSE AFTER 2 CYCLES, AUC5
     Route: 065
     Dates: start: 2020
  8. HERCEPTIN [Suspect]
     Active Substance: TRASTUZUMAB
     Indication: HER2 POSITIVE BREAST CANCER
     Dosage: UNK
     Route: 065
     Dates: start: 2020
  9. CARBOPLATIN. [Suspect]
     Active Substance: CARBOPLATIN
     Dosage: UNK
     Route: 065
     Dates: start: 20200403, end: 2020

REACTIONS (8)
  - Spinal pain [Unknown]
  - Vomiting [Unknown]
  - Erythema [Unknown]
  - Ageusia [Unknown]
  - Pain in extremity [Unknown]
  - Abdominal pain upper [Unknown]
  - Diarrhoea [Unknown]
  - Decreased appetite [Unknown]

NARRATIVE: CASE EVENT DATE: 2020
